FAERS Safety Report 25306910 (Version 3)
Quarter: 2025Q2

REPORT INFORMATION
  Report Type: Spontaneous
  Country: US (occurrence: US)
  Receive Date: 20250513
  Receipt Date: 20250530
  Transmission Date: 20250717
  Serious: No
  Sender: AMGEN
  Company Number: US-AMGEN-USASP2025087314

PATIENT
  Age: 81 Year
  Sex: Male
  Weight: 75.3 kg

DRUGS (2)
  1. NEULASTA [Suspect]
     Active Substance: PEGFILGRASTIM
     Indication: Prophylaxis
     Route: 065
  2. NEULASTA [Suspect]
     Active Substance: PEGFILGRASTIM
     Route: 065

REACTIONS (5)
  - Device issue [Unknown]
  - Device issue [Unknown]
  - Injection site swelling [Unknown]
  - Injection site erythema [Unknown]
  - Product communication issue [Unknown]

NARRATIVE: CASE EVENT DATE: 20250501
